FAERS Safety Report 6899847-1 (Version None)
Quarter: 2010Q3

REPORT INFORMATION
  Report Type: 
  Country: None (occurrence: None)
  Receive Date: 20100803
  Receipt Date: 20100722
  Transmission Date: 20110219
  Serious: Yes (Death, Other)
  Sender: FDA-Public Use
  Company Number: PHFR2010GB00689

PATIENT
  Sex: Female

DRUGS (10)
  1. CLOZARIL [Suspect]
     Indication: SCHIZOPHRENIA
     Dosage: UNK
     Dates: start: 20031121
  2. RABEPRAZOLE SODIUM [Concomitant]
     Indication: DYSPEPSIA
     Dosage: 20MG DAILY
     Route: 048
     Dates: start: 20020822
  3. RABEPRAZOLE SODIUM [Concomitant]
     Indication: BARRETT'S OESOPHAGUS
  4. ACETYLSALICYLIC ACID SRT [Concomitant]
     Indication: ANGINA PECTORIS
     Dosage: 75MG DAILY
     Route: 050
  5. ATORVASTATIN [Concomitant]
     Indication: DIABETES MELLITUS
     Dosage: 30MG DAILY
     Dates: start: 20041224
  6. PAROXETINE HCL [Concomitant]
     Indication: DEPRESSION
     Dosage: 40MG DAILY
     Route: 048
     Dates: start: 19930831
  7. DOCUSATE [Concomitant]
     Dosage: 200 MG, BID
     Dates: start: 20031023
  8. PROCYCLIDINE HYDROCHLORIDE 2MG TAB [Concomitant]
     Dosage: 5 MG, QID
     Route: 048
     Dates: start: 20080403
  9. TERBINAFINE HCL [Concomitant]
     Dosage: UNK
     Route: 061
     Dates: start: 20070831
  10. TIMODINE ^LLOYD^ [Concomitant]
     Dosage: UNK
     Route: 061
     Dates: start: 20061103

REACTIONS (6)
  - AORTIC RUPTURE [None]
  - ASPIRATION [None]
  - CONSTIPATION [None]
  - INTESTINAL OBSTRUCTION [None]
  - MENTAL DISORDER [None]
  - VOLVULUS [None]
